FAERS Safety Report 22010225 (Version 1)
Quarter: 2023Q1

REPORT INFORMATION
  Report Type: Report from Study
  Country: CA (occurrence: CA)
  Receive Date: 20230220
  Receipt Date: 20230220
  Transmission Date: 20230418
  Serious: Yes (Hospitalization, Other)
  Sender: FDA-Public Use
  Company Number: CA-ABBVIE-4311006

PATIENT
  Sex: Female

DRUGS (1)
  1. SKYRIZI [Suspect]
     Active Substance: RISANKIZUMAB-RZAA
     Indication: Psoriasis
     Route: 058
     Dates: start: 20210531

REACTIONS (7)
  - Blood glucose increased [Unknown]
  - Diabetes mellitus [Unknown]
  - Fatigue [Unknown]
  - Hepatic cirrhosis [Unknown]
  - Hepatic vascular thrombosis [Unknown]
  - Hypercholesterolaemia [Unknown]
  - Blood magnesium decreased [Unknown]
